FAERS Safety Report 6913655-4 (Version None)
Quarter: 2010Q3

REPORT INFORMATION
  Report Type: 
  Country: None (occurrence: None)
  Receive Date: 20100806
  Receipt Date: 20100806
  Transmission Date: 20110219
  Serious: Yes (Other)
  Sender: FDA-Public Use
  Company Number: None

PATIENT
  Sex: Female
  Weight: 56.246 kg

DRUGS (1)
  1. METHYLTESTOSTERONE TAB [Suspect]
     Indication: HYSTERECTOMY
     Dosage: 1 TABLET DAILY ORALLY
     Route: 048
     Dates: start: 20100709, end: 20100712

REACTIONS (3)
  - OEDEMA PERIPHERAL [None]
  - PRURITUS [None]
  - RASH [None]
